FAERS Safety Report 10965837 (Version 1)
Quarter: 2015Q1

REPORT INFORMATION
  Report Type: Spontaneous
  Country: US (occurrence: US)
  Receive Date: 20150330
  Receipt Date: 20150330
  Transmission Date: 20150721
  Serious: Yes (Other)
  Sender: FDA-Public Use
  Company Number: US-UCBSA-2015009972

PATIENT
  Sex: Female
  Weight: 20 kg

DRUGS (3)
  1. KEPPRA [Suspect]
     Active Substance: LEVETIRACETAM
     Dosage: 1.5 ML, 2X/DAY (BID)
     Dates: start: 2014, end: 2014
  2. KEPPRA [Suspect]
     Active Substance: LEVETIRACETAM
     Indication: GENERALISED TONIC-CLONIC SEIZURE
     Dosage: 0.5 ML, 2X/DAY (BID)
     Dates: start: 201401, end: 2014
  3. KEPPRA [Suspect]
     Active Substance: LEVETIRACETAM
     Dosage: 3 ML, 2X/DAY (BID)
     Dates: start: 2014, end: 201412

REACTIONS (7)
  - Amnesia [Recovering/Resolving]
  - Confusional state [Recovering/Resolving]
  - Aggression [Recovering/Resolving]
  - Off label use [Unknown]
  - Feeling abnormal [Recovering/Resolving]
  - Psychotic disorder [Recovering/Resolving]
  - Learning disorder [Recovering/Resolving]

NARRATIVE: CASE EVENT DATE: 2014
